FAERS Safety Report 7035312-9 (Version None)
Quarter: 2010Q4

REPORT INFORMATION
  Report Type: 
  Country: None (occurrence: None)
  Receive Date: 20101008
  Receipt Date: 20100930
  Transmission Date: 20110411
  Serious: Yes (Death)
  Sender: FDA-Public Use
  Company Number: B0677091A

PATIENT
  Sex: Male

DRUGS (13)
  1. EPIVIR [Suspect]
     Indication: HIV INFECTION
     Route: 048
     Dates: start: 20100708, end: 20100918
  2. ZIAGEN [Suspect]
     Indication: HIV INFECTION
     Route: 048
     Dates: start: 20100708, end: 20100921
  3. KALETRA [Suspect]
     Indication: HIV INFECTION
     Route: 048
     Dates: start: 20100708, end: 20100909
  4. ISENTRESS [Suspect]
     Indication: HIV INFECTION
     Route: 048
     Dates: start: 20100708, end: 20100921
  5. LARGACTIL [Suspect]
     Dosage: 5DROP PER DAY
     Route: 048
     Dates: start: 20100902, end: 20100918
  6. AMIKIN [Suspect]
     Route: 042
     Dates: start: 20100908, end: 20100915
  7. CYMEVAN [Concomitant]
     Indication: CYTOMEGALOVIRUS INFECTION
     Dates: end: 20100902
  8. VALGANCICLOVIR HCL [Concomitant]
     Indication: CYTOMEGALOVIRUS INFECTION
     Dates: start: 20100718
  9. BACTRIM [Concomitant]
     Route: 048
     Dates: start: 20100613, end: 20100830
  10. PREZISTA [Concomitant]
     Indication: HIV INFECTION
     Route: 048
     Dates: start: 20100909, end: 20100918
  11. NORVIR [Concomitant]
     Indication: HIV INFECTION
     Dates: start: 20100909, end: 20100918
  12. CEFTAZIDIME [Concomitant]
     Dates: start: 20100909, end: 20100915
  13. TEMESTA [Concomitant]
     Dates: start: 20100818, end: 20100918

REACTIONS (12)
  - ASCITES [None]
  - CELL DEATH [None]
  - CHILLS [None]
  - CHOLESTASIS [None]
  - COMA [None]
  - CONDITION AGGRAVATED [None]
  - DIARRHOEA [None]
  - HEPATIC FAILURE [None]
  - HEPATITIS FULMINANT [None]
  - HYPOTENSION [None]
  - MOVEMENT DISORDER [None]
  - PYREXIA [None]
